FAERS Safety Report 7001163-4 (Version None)
Quarter: 2010Q3

REPORT INFORMATION
  Report Type: 
  Country: None (occurrence: None)
  Receive Date: 20100920
  Receipt Date: 20070925
  Transmission Date: 20110219
  Serious: Yes (Hospitalization)
  Sender: FDA-Public Use
  Company Number: US-ASTRAZENECA-2006UW04260

PATIENT
  Sex: Female
  Weight: 142.9 kg

DRUGS (15)
  1. SEROQUEL [Suspect]
     Indication: BIPOLAR DISORDER
     Route: 048
     Dates: start: 20050201
  2. SEROQUEL [Suspect]
     Indication: SCHIZOAFFECTIVE DISORDER
     Route: 048
     Dates: start: 20050201
  3. SEROQUEL [Suspect]
     Dosage: STRENGTH-25MG,100MG DOSE-25MG-250MG
     Route: 048
     Dates: start: 20050801
  4. SEROQUEL [Suspect]
     Dosage: STRENGTH-25MG,100MG DOSE-25MG-250MG
     Route: 048
     Dates: start: 20050801
  5. ABILIFY [Concomitant]
  6. ABILIFY [Concomitant]
     Route: 048
     Dates: start: 20060302
  7. HALDOL [Concomitant]
  8. FLUOXETINE [Concomitant]
     Route: 048
     Dates: start: 20060111
  9. SOMA [Concomitant]
     Dates: start: 20050801
  10. ZESTRIL [Concomitant]
     Route: 048
     Dates: start: 20050801
  11. TOPAMAX [Concomitant]
     Dates: start: 20050801
  12. GUAIFENESIN [Concomitant]
     Dates: start: 20050802
  13. CELEBREX [Concomitant]
     Route: 048
     Dates: start: 20060302
  14. EFFEXOR XR [Concomitant]
     Route: 048
     Dates: start: 20060312
  15. TRAZODONE HCL [Concomitant]
     Dosage: TK 1 TO 2 TS PO QHS
     Route: 048
     Dates: start: 20060302

REACTIONS (3)
  - DIABETES MELLITUS [None]
  - OVERDOSE [None]
  - SUICIDE ATTEMPT [None]
